FAERS Safety Report 7808369-2 (Version None)
Quarter: 2011Q4

REPORT INFORMATION
  Report Type: 
  Country: None (occurrence: None)
  Receive Date: 20111011
  Receipt Date: 20111011
  Transmission Date: 20120403
  Serious: Yes (Hospitalization)
  Sender: FDA-Public Use
  Company Number: None

PATIENT
  Age: 55 Year
  Sex: Male
  Weight: 102.2 kg

DRUGS (2)
  1. DALTEPARIN SODIUM [Suspect]
     Dosage: 10000 UNITS BID SQ
     Route: 058
     Dates: start: 20110805, end: 20110817
  2. WARFARIN SODIUM [Suspect]
     Dosage: 5 MG EVERY DAY PO
     Route: 048
     Dates: start: 20110805, end: 20110828

REACTIONS (2)
  - HAEMARTHROSIS [None]
  - HAEMORRHAGE [None]
